FAERS Safety Report 8294082-7 (Version None)
Quarter: 2012Q2

REPORT INFORMATION
  Report Type: 
  Country: None (occurrence: None)
  Receive Date: 20120418
  Receipt Date: 20120403
  Transmission Date: 20120825
  Serious: Yes (Other)
  Sender: FDA-Public Use
  Company Number: CA-JNJFOC-20120402213

PATIENT
  Sex: Male
  Weight: 58 kg

DRUGS (3)
  1. REMICADE [Suspect]
     Route: 042
     Dates: start: 20120403
  2. VITAMIN B-12 [Concomitant]
     Route: 058
  3. REMICADE [Suspect]
     Indication: CROHN'S DISEASE
     Route: 042
     Dates: start: 20101208

REACTIONS (9)
  - PALLOR [None]
  - FEELING DRUNK [None]
  - VISUAL IMPAIRMENT [None]
  - INFUSION RELATED REACTION [None]
  - FEELING ABNORMAL [None]
  - HEADACHE [None]
  - NAUSEA [None]
  - ARTHRALGIA [None]
  - DIZZINESS [None]
